FAERS Safety Report 7089301-9 (Version None)
Quarter: 2010Q4

REPORT INFORMATION
  Report Type: 
  Country: None (occurrence: None)
  Receive Date: 20101029
  Receipt Date: 20101016
  Transmission Date: 20110411
  Serious: Yes (Other)
  Sender: FDA-Public Use
  Company Number: 011563

PATIENT
  Sex: Male

DRUGS (1)
  1. MACUGEN [Suspect]
     Dosage: 0.3MG, 1X/DAY, INTRAOCULAR
     Route: 031

REACTIONS (1)
  - VISUAL IMPAIRMENT [None]
